FAERS Safety Report 21196980 (Version 3)
Quarter: 2022Q3

REPORT INFORMATION
  Report Type: Report from Study
  Country: JP (occurrence: JP)
  Receive Date: 20220810
  Receipt Date: 20220912
  Transmission Date: 20221027
  Serious: Yes (Other)
  Sender: FDA-Public Use
  Company Number: JP-KYOWAKIRIN-2022AKK011859

PATIENT

DRUGS (16)
  1. BUROSUMAB [Suspect]
     Active Substance: BUROSUMAB
     Indication: Hereditary hypophosphataemic rickets
     Dosage: 8 MG, 1X/2 WEEKS
     Route: 058
     Dates: start: 20220307, end: 20220502
  2. BUROSUMAB [Suspect]
     Active Substance: BUROSUMAB
     Dosage: 4 MG, 1X/2 WEEKS
     Route: 058
     Dates: start: 20210705, end: 20210803
  3. BUROSUMAB [Suspect]
     Active Substance: BUROSUMAB
     Dosage: 4 MG
     Route: 058
     Dates: start: 20210821, end: 20210821
  4. BUROSUMAB [Suspect]
     Active Substance: BUROSUMAB
     Dosage: 5 MG, 1X/2 WEEKS
     Route: 058
     Dates: start: 20210911, end: 20211007
  5. BUROSUMAB [Suspect]
     Active Substance: BUROSUMAB
     Dosage: 6 MG
     Route: 058
     Dates: start: 20211019, end: 20211019
  6. BUROSUMAB [Suspect]
     Active Substance: BUROSUMAB
     Dosage: 6 MG
     Route: 058
     Dates: start: 20211106, end: 20211106
  7. BUROSUMAB [Suspect]
     Active Substance: BUROSUMAB
     Dosage: 6 MG
     Route: 058
     Dates: start: 20211122, end: 20211122
  8. BUROSUMAB [Suspect]
     Active Substance: BUROSUMAB
     Dosage: 6 MG
     Route: 058
     Dates: start: 20211207, end: 20211207
  9. BUROSUMAB [Suspect]
     Active Substance: BUROSUMAB
     Dosage: 7 MG, 1X/2 WEEKS
     Route: 058
     Dates: start: 20211223, end: 20220118
  10. BUROSUMAB [Suspect]
     Active Substance: BUROSUMAB
     Dosage: 8 MG, 1X/2 WEEKS
     Route: 058
     Dates: start: 20220203, end: 20220217
  11. BUROSUMAB [Suspect]
     Active Substance: BUROSUMAB
     Dosage: 9 MG, 1X/3 WEEKS
     Route: 058
     Dates: start: 20220517, end: 20220607
  12. BUROSUMAB [Suspect]
     Active Substance: BUROSUMAB
     Dosage: 10 MG
     Route: 058
     Dates: start: 20220621, end: 20220621
  13. GLYCOSAMINOGLYCANS [Concomitant]
     Active Substance: GLYCOSAMINOGLYCANS
     Indication: Product used for unknown indication
     Dosage: UNK
     Route: 061
  14. RINDERON VG [Concomitant]
     Active Substance: BETAMETHASONE VALERATE\GENTAMICIN SULFATE
     Indication: Product used for unknown indication
     Dosage: UNK
     Route: 061
  15. PETROLATUM [Concomitant]
     Active Substance: PETROLATUM
     Indication: Product used for unknown indication
     Dosage: UNK
     Route: 061
  16. GLYCOSAMINOGLYCANS [Concomitant]
     Active Substance: GLYCOSAMINOGLYCANS
     Indication: Product used for unknown indication
     Dosage: UNK
     Route: 061

REACTIONS (3)
  - Craniosynostosis [Unknown]
  - Upper respiratory tract inflammation [Recovering/Resolving]
  - Upper respiratory tract inflammation [Recovering/Resolving]

NARRATIVE: CASE EVENT DATE: 20220104
